FAERS Safety Report 24355382 (Version 5)
Quarter: 2025Q1

REPORT INFORMATION
  Report Type: Report from Study
  Country: US (occurrence: US)
  Receive Date: 20240924
  Receipt Date: 20250311
  Transmission Date: 20250409
  Serious: Yes (Hospitalization, Other)
  Sender: ACADIA PHARMACEUTICALS
  Company Number: US-ACADIA PHARMACEUTICALS INC.-ACA-2024-TRF-005224

PATIENT
  Age: 8 Year
  Sex: Female

DRUGS (1)
  1. DAYBUE [Suspect]
     Active Substance: TROFINETIDE
     Indication: Rett syndrome
     Dosage: 30 MILLILITER, BID
     Route: 048
     Dates: start: 20230601

REACTIONS (4)
  - Pneumonia [Recovered/Resolved]
  - Pneumonia [Unknown]
  - COVID-19 [Unknown]
  - Faeces soft [Recovering/Resolving]

NARRATIVE: CASE EVENT DATE: 20241002
